FAERS Safety Report 4294045-2 (Version None)
Quarter: 2004Q1

REPORT INFORMATION
  Report Type: 
  Country: None (occurrence: None)
  Receive Date: 20040211
  Receipt Date: 20040126
  Transmission Date: 20041129
  Serious: Yes (Other)
  Sender: FDA-Public Use
  Company Number: 235057

PATIENT
  Age: 14 Year
  Sex: Female
  Weight: 36.5 kg

DRUGS (1)
  1. NORDITROPIN [Suspect]
     Indication: GROWTH HORMONE DEFICIENCY
     Dosage: 1:06 MG, QD, SUBCUTANEOUS
     Route: 058
     Dates: start: 20040114

REACTIONS (2)
  - PRURITUS GENERALISED [None]
  - RASH GENERALISED [None]
